FAERS Safety Report 8175122-2 (Version None)
Quarter: 2012Q1

REPORT INFORMATION
  Report Type: 
  Country: None (occurrence: None)
  Receive Date: 20120229
  Receipt Date: 20120223
  Transmission Date: 20120608
  Serious: Yes (Hospitalization)
  Sender: FDA-Public Use
  Company Number: PHEH2011US03341

PATIENT
  Sex: Male
  Weight: 41.6 kg

DRUGS (2)
  1. EXJADE [Suspect]
     Indication: IRON OVERLOAD
     Dosage: 750 MG, DAILY
     Route: 048
     Dates: start: 20060614
  2. EXJADE [Suspect]
     Indication: SICKLE CELL ANAEMIA
     Dosage: 500 MG, QD
     Route: 048
     Dates: start: 20060523

REACTIONS (6)
  - BACK PAIN [None]
  - CHEST PAIN [None]
  - PAIN [None]
  - ABDOMINAL PAIN [None]
  - PNEUMONIA [None]
  - SICKLE CELL ANAEMIA WITH CRISIS [None]
